FAERS Safety Report 11231457 (Version 1)
Quarter: 2015Q2

REPORT INFORMATION
  Report Type: Spontaneous
  Country: US (occurrence: None)
  Receive Date: 20150630
  Receipt Date: 20150630
  Transmission Date: 20150821
  Serious: No
  Sender: FDA-Public Use
  Company Number: None

PATIENT
  Age: 37 Year
  Sex: Female

DRUGS (3)
  1. AMPYRA [Suspect]
     Active Substance: DALFAMPRIDINE
     Indication: MULTIPLE SCLEROSIS
     Route: 048
     Dates: start: 201401
  2. AMANTADINE [Concomitant]
     Active Substance: AMANTADINE
  3. GLATIRAMER [Concomitant]
     Active Substance: GLATIRAMER

REACTIONS (3)
  - Protein urine present [None]
  - Specific gravity urine increased [None]
  - Urine abnormality [None]

NARRATIVE: CASE EVENT DATE: 20150514
